FAERS Safety Report 7085187-7 (Version None)
Quarter: 2010Q4

REPORT INFORMATION
  Report Type: 
  Country: None (occurrence: None)
  Receive Date: 20101028
  Receipt Date: 20101018
  Transmission Date: 20110411
  Serious: Yes (Other)
  Sender: FDA-Public Use
  Company Number: MY-JNJFOC-20100902521

PATIENT
  Age: 68 Year
  Sex: Male

DRUGS (9)
  1. DACOGEN [Suspect]
     Indication: MYELODYSPLASTIC SYNDROME
     Dosage: 20 MG/M2, 1 IN 1 DAY, INTRAVENOUS
     Route: 042
     Dates: start: 20100713, end: 20100717
  2. NYSTATIN (NYSTATIN) UNSPECIFIED [Concomitant]
  3. SODIUM BICARBONATE (SODIUM BICARBONATE) UNSPECIFIED [Concomitant]
  4. HYDROXYUREA [Concomitant]
  5. 6-THIOGUANINE (TIOGUANINE) UNSPECIFIED [Concomitant]
  6. BROMHEXINE (BROMHEXINE) UNSPECIFIED [Concomitant]
  7. ALLOPURINOL (ALLOPURINOL) UNSPECIFIED [Concomitant]
  8. TRANEXAMIC ACID (TRANEXAMIC ACID) UNSPECIFIED [Concomitant]
  9. CEFEPIME (CEFEPIME) UNSPECIFIED [Concomitant]

REACTIONS (4)
  - ACUTE MYELOID LEUKAEMIA [None]
  - CHOLESTASIS [None]
  - HEPATOSPLENOMEGALY [None]
  - MYELODYSPLASTIC SYNDROME TRANSFORMATION [None]
